FAERS Safety Report 10913593 (Version 1)
Quarter: 2015Q1

REPORT INFORMATION
  Report Type: Spontaneous
  Country: US (occurrence: None)
  Receive Date: 20150310
  Receipt Date: 20150310
  Transmission Date: 20150721
  Serious: Yes (Hospitalization)
  Sender: FDA-Public Use
  Company Number: None

PATIENT
  Age: 67 Year
  Sex: Male
  Weight: 131 kg

DRUGS (1)
  1. RIVAROXABAN [Suspect]
     Active Substance: RIVAROXABAN
     Indication: GASTROINTESTINAL HAEMORRHAGE
     Route: 048
     Dates: start: 20130313, end: 20150205

REACTIONS (2)
  - Gastrointestinal haemorrhage [None]
  - Gastric haemorrhage [None]

NARRATIVE: CASE EVENT DATE: 20150127
